FAERS Safety Report 12775405 (Version 1)
Quarter: 2016Q3

REPORT INFORMATION
  Report Type: Spontaneous
  Country: GB (occurrence: GB)
  Receive Date: 20160923
  Receipt Date: 20160923
  Transmission Date: 20161109
  Serious: Yes (Other)
  Sender: FDA-Public Use
  Company Number: GB-PFIZER INC-18175

PATIENT
  Age: 71 Year
  Sex: Female

DRUGS (12)
  1. SODIUM HYALURONATE [Suspect]
     Active Substance: HYALURONATE SODIUM
     Indication: CATARACT OPERATION
     Dosage: UNSPECIFIED DOSE FREQ:UNK
     Route: 031
     Dates: start: 20070501
  2. BALANCED SALT [Suspect]
     Active Substance: CALCIUM CHLORIDE\MAGNESIUM CHLORIDE\POTASSIUM CHLORIDE\SODIUM ACETATE\SODIUM CHLORIDE\SODIUM CITRATE
     Indication: EYE IRRIGATION
     Dosage: FREQ: FREQ UNK
     Route: 031
     Dates: start: 20070501
  3. LIDOCAINE HCL [Suspect]
     Active Substance: LIDOCAINE HYDROCHLORIDE
     Indication: ANAESTHESIA
     Dosage: 1 %, FREQ: FREQ UNK
     Route: 031
     Dates: start: 20070504
  4. CYCLOPENTOLATE. [Suspect]
     Active Substance: CYCLOPENTOLATE
     Indication: POSTOPERATIVE CARE
     Dosage: 1 %, FREQ: FREQ UNK
     Route: 031
     Dates: start: 20070504
  5. CHLORAMPHENICOL [Suspect]
     Active Substance: CHLORAMPHENICOL
     Indication: CATARACT OPERATION
     Dosage: 0.5 %, FREQ:UNK
     Route: 031
     Dates: start: 20070501
  6. ADRENALINE /00003901/ [Suspect]
     Active Substance: EPINEPHRINE
     Indication: EYE IRRIGATION
     Dosage: 0.3 ML, FREQ: UNK
     Route: 031
     Dates: start: 20070504
  7. NEOMYCIN SULFATE. [Suspect]
     Active Substance: NEOMYCIN SULFATE
     Indication: POSTOPERATIVE CARE
     Dosage: DOSAGE NOT SPECIFIED, FREQ: FREQ UNK
     Route: 031
     Dates: start: 20070501
  8. POVIDONE-IODINE. [Suspect]
     Active Substance: POVIDONE-IODINE
     Indication: CATARACT OPERATION
     Dosage: DOSAGE NOT SPECIFIED, FREQ: FREQ UNK
     Route: 031
     Dates: start: 20070501
  9. PHENYLEPHRINE [Suspect]
     Active Substance: PHENYLEPHRINE\PHENYLEPHRINE HYDROCHLORIDE
     Indication: CATARACT OPERATION
     Dosage: 1 DF, FREQ: FREQ UNK
     Route: 031
     Dates: start: 20070501
  10. VANCOMYCIN HCL [Suspect]
     Active Substance: VANCOMYCIN HYDROCHLORIDE
     Indication: CATARACT OPERATION
     Dosage: 10 MG, FREQ: FREQ UNK
     Route: 031
     Dates: start: 20070501
  11. OCUFEN [Suspect]
     Active Substance: FLURBIPROFEN SODIUM
     Indication: POSTOPERATIVE CARE
     Dosage: 0.03 %, FREQ: FREQ UNK
     Route: 031
     Dates: start: 20070501
  12. BETAMETHASONE. [Suspect]
     Active Substance: BETAMETHASONE
     Indication: POSTOPERATIVE CARE
     Dosage: DOSE NOT SPECIFIED, FREQ: FREQ UNK
     Route: 031
     Dates: start: 20070501

REACTIONS (1)
  - Toxic anterior segment syndrome [Recovering/Resolving]

NARRATIVE: CASE EVENT DATE: 20070510
